FAERS Safety Report 6818526-X (Version None)
Quarter: 2010Q3

REPORT INFORMATION
  Report Type: 
  Country: None (occurrence: None)
  Receive Date: 20100706
  Receipt Date: 20080714
  Transmission Date: 20110219
  Serious: Yes (Disabling, Other)
  Sender: FDA-Public Use
  Company Number: US-PFIZER INC-2008041496

PATIENT
  Sex: Female

DRUGS (2)
  1. ZITHROMAX [Suspect]
     Indication: SINUSITIS
     Route: 048
     Dates: start: 20080430, end: 20080430
  2. ZITHROMAX [Suspect]
     Indication: EAR INFECTION
     Route: 048
     Dates: start: 20080501, end: 20080504

REACTIONS (2)
  - AGEUSIA [None]
  - ANOSMIA [None]
